FAERS Safety Report 10033981 (Version 1)
Quarter: 2014Q1

REPORT INFORMATION
  Report Type: Spontaneous
  Country: US (occurrence: US)
  Receive Date: 20140325
  Receipt Date: 20140325
  Transmission Date: 20141002
  Serious: Yes (Hospitalization)
  Sender: FDA-Public Use
  Company Number: US-BEH-2014041235

PATIENT
  Age: 61 Year
  Sex: Female

DRUGS (2)
  1. HIZENTRA [Suspect]
     Route: 058
  2. RITUXAN [Suspect]

REACTIONS (6)
  - Salivary gland enlargement [Unknown]
  - Local swelling [Unknown]
  - Eye swelling [Unknown]
  - Pyrexia [Recovered/Resolved]
  - Malaise [Not Recovered/Not Resolved]
  - Central venous catheterisation [Unknown]
